FAERS Safety Report 13688832 (Version 1)
Quarter: 2017Q2

REPORT INFORMATION
  Report Type: Spontaneous
  Country: US (occurrence: US)
  Receive Date: 20170623
  Receipt Date: 20170623
  Transmission Date: 20170830
  Serious: Yes (Other)
  Sender: FDA-Public Use
  Company Number: None

PATIENT
  Age: 79 Year
  Sex: Male

DRUGS (6)
  1. NIFEDICAL XL [Concomitant]
     Active Substance: NIFEDIPINE
  2. TAMSULOSIN [Concomitant]
     Active Substance: TAMSULOSIN
  3. LONSURF [Suspect]
     Active Substance: TIPIRACIL HYDROCHLORIDE\TRIFLURIDINE
     Indication: RECTAL CANCER
     Route: 048
     Dates: start: 20170304
  4. PHENAZOPYRID [Concomitant]
  5. LISINOPRIL. [Concomitant]
     Active Substance: LISINOPRIL
  6. NORTRIPTYLINE [Concomitant]
     Active Substance: NORTRIPTYLINE

REACTIONS (2)
  - White blood cell count decreased [None]
  - Platelet count decreased [None]

NARRATIVE: CASE EVENT DATE: 2017
